FAERS Safety Report 23725082 (Version 1)
Quarter: 2024Q2

REPORT INFORMATION
  Report Type: Spontaneous
  Country: CO (occurrence: CO)
  Receive Date: 20240410
  Receipt Date: 20240410
  Transmission Date: 20240715
  Serious: Yes (Death, Other)
  Sender: FDA-Public Use
  Company Number: CO-GRUNENTHAL-2024-118538

PATIENT
  Age: 80 Year
  Sex: Female

DRUGS (1)
  1. NUCYNTA ER [Suspect]
     Active Substance: TAPENTADOL HYDROCHLORIDE
     Indication: Back pain
     Dosage: 1 DOSAGE FORM, EVERY 12 HRS
     Route: 065

REACTIONS (3)
  - Neurotoxicity [Fatal]
  - Loss of consciousness [Unknown]
  - Generalised tonic-clonic seizure [Unknown]
